FAERS Safety Report 7634695-6 (Version None)
Quarter: 2011Q3

REPORT INFORMATION
  Report Type: 
  Country: None (occurrence: None)
  Receive Date: 20110725
  Receipt Date: 20090316
  Transmission Date: 20111222
  Serious: Yes (Other)
  Sender: FDA-Public Use
  Company Number: US-BAYER-200915535NA

PATIENT
  Age: 57 Year
  Sex: Male
  Weight: 99.32 kg

DRUGS (21)
  1. HEPARIN [Concomitant]
     Route: 042
  2. AMIDATE [Concomitant]
     Dosage: 20 ML, UNK
     Route: 042
  3. TRASYLOL [Suspect]
     Dosage: 200 ML CARDIOPULMONARY BYPASS PRIME
     Route: 042
     Dates: start: 20000522, end: 20000522
  4. ZOCOR [Concomitant]
     Dosage: 40 MG, UNK
     Route: 048
  5. DILTIAZEM [Concomitant]
     Dosage: 180 MG, UNK
     Route: 048
  6. HESPAN IN EXCEL PLASTIC CONTAINER [Concomitant]
     Dosage: 500 ML, UNK
     Route: 042
  7. PANCURONIUM [Concomitant]
     Dosage: 10 ML, UNK
     Route: 042
  8. VERSED [Concomitant]
     Route: 042
  9. QUINAPRIL HCL [Concomitant]
     Dosage: 20 MG, UNK
     Route: 048
  10. VERPAMIL [Concomitant]
     Route: 042
  11. TRASYLOL [Suspect]
     Dosage: 50 ML/HOUR INFUSION
     Route: 042
     Dates: start: 20000522, end: 20000522
  12. FUROSEMIDE [Concomitant]
     Dosage: 40 MG, UNK
     Route: 048
  13. KANAMYCIN [Concomitant]
     Dosage: 1 G, UNK
     Route: 042
  14. BACITRACIN [Concomitant]
     Dosage: 50000 U, UNK
     Route: 042
  15. EPHEDRINE [Concomitant]
     Dosage: 50 MG, UNK
     Route: 042
  16. ZINACEF [Concomitant]
     Dosage: 1.5 G, UNK
     Route: 042
  17. VANCOMYCIN [Concomitant]
     Dosage: 1 G, UNK
     Route: 042
  18. CONTRAST MEDIA [Concomitant]
     Indication: SCAN MYOCARDIAL PERFUSION
     Dosage: UNK
     Dates: start: 20000516
  19. HUMULIN 70/30 [Concomitant]
     Route: 048
  20. TRASYLOL [Suspect]
     Indication: CORONARY ARTERY BYPASS
     Dosage: 1 ML, ONCE, INITIAL TEST DOSE
     Route: 042
     Dates: start: 20000522, end: 20000522
  21. TRASYLOL [Suspect]
     Dosage: 200 ML LOADING DOSE
     Route: 042
     Dates: start: 20000522, end: 20000522

REACTIONS (9)
  - ANXIETY [None]
  - PAIN [None]
  - DEPRESSION [None]
  - ANHEDONIA [None]
  - CEREBROVASCULAR ACCIDENT [None]
  - INJURY [None]
  - FEAR [None]
  - RENAL FAILURE [None]
  - UNEVALUABLE EVENT [None]
